FAERS Safety Report 4870176-0 (Version None)
Quarter: 2005Q4

REPORT INFORMATION
  Report Type: 
  Country: None (occurrence: None)
  Receive Date: 20051228
  Receipt Date: 20051216
  Transmission Date: 20060501
  Serious: Yes (Death, Hospitalization, Other)
  Sender: FDA-Public Use
  Company Number: 200413295GDS

PATIENT
  Age: 77 Year
  Sex: Male
  Weight: 79 kg

DRUGS (8)
  1. MOXIFLOXACIN HCL [Suspect]
     Indication: PNEUMONIA
     Dosage: 400 MG, QD; INTRAVENOUS
     Route: 042
     Dates: start: 20041115, end: 20041125
  2. DIGOXIN [Concomitant]
  3. CLEXANE [Concomitant]
  4. ASPIRIN [Concomitant]
  5. SALBUTAMOL [Concomitant]
  6. RANITIDINE [Concomitant]
  7. INSULIN [Concomitant]
  8. INYESPRIN [Concomitant]

REACTIONS (7)
  - DRUG INEFFECTIVE [None]
  - ESCHERICHIA INFECTION [None]
  - PATHOGEN RESISTANCE [None]
  - PULMONARY EMBOLISM [None]
  - PULMONARY HYPERTENSION [None]
  - SHOCK [None]
  - SUPERINFECTION [None]
